FAERS Safety Report 8345617-7 (Version None)
Quarter: 2012Q2

REPORT INFORMATION
  Report Type: 
  Country: None (occurrence: None)
  Receive Date: 20120508
  Receipt Date: 20110901
  Transmission Date: 20120825
  Serious: Yes (Other)
  Sender: FDA-Public Use
  Company Number: US-BAYER-2011-081312

PATIENT
  Sex: Female

DRUGS (2)
  1. AVELOX [Suspect]
     Dosage: UNK
     Dates: start: 20110430
  2. IMMUNE GLOBULIN (HUMAN) [Suspect]
     Indication: HYPOGAMMAGLOBULINAEMIA
     Dosage: 50 ML, OW
     Dates: start: 20110428

REACTIONS (4)
  - ANAPHYLACTIC REACTION [None]
  - EYE SWELLING [None]
  - THROAT TIGHTNESS [None]
  - PRURITUS GENERALISED [None]
